FAERS Safety Report 21335927 (Version 1)
Quarter: 2022Q3

REPORT INFORMATION
  Report Type: Spontaneous
  Country: CA (occurrence: CA)
  Receive Date: 20220915
  Receipt Date: 20220915
  Transmission Date: 20221026
  Serious: Yes (Hospitalization, Other)
  Sender: FDA-Public Use
  Company Number: None

PATIENT
  Age: 56 Year
  Sex: Male

DRUGS (142)
  1. NITRO-DUR [Suspect]
     Active Substance: NITROGLYCERIN
     Indication: Product used for unknown indication
     Route: 048
  2. NITROGLYCERIN [Suspect]
     Active Substance: NITROGLYCERIN
     Indication: Product used for unknown indication
     Route: 048
  3. NITROGLYCERIN [Suspect]
     Active Substance: NITROGLYCERIN
     Indication: Product used for unknown indication
     Route: 065
  4. ACETAMINOPHEN\CODEINE PHOSPHATE [Suspect]
     Active Substance: ACETAMINOPHEN\CODEINE PHOSPHATE
     Indication: Product used for unknown indication
     Dosage: ELIXIR
     Route: 065
  5. ASPIRIN [Suspect]
     Active Substance: ASPIRIN
     Indication: Product used for unknown indication
     Route: 065
  6. AMLODIPINE BESYLATE [Suspect]
     Active Substance: AMLODIPINE BESYLATE
     Indication: Product used for unknown indication
     Route: 065
  7. BISOPROLOL [Suspect]
     Active Substance: BISOPROLOL
     Indication: Product used for unknown indication
     Route: 048
  8. BRILINTA [Suspect]
     Active Substance: TICAGRELOR
     Indication: Product used for unknown indication
     Route: 065
  9. CICLOPIROX [Suspect]
     Active Substance: CICLOPIROX
     Indication: Product used for unknown indication
     Route: 065
  10. CICLOPIROX OLAMINE [Suspect]
     Active Substance: CICLOPIROX OLAMINE
     Indication: Product used for unknown indication
     Route: 065
  11. CLONAZEPAM [Suspect]
     Active Substance: CLONAZEPAM
     Indication: Product used for unknown indication
     Route: 065
  12. DELATESTRYL [Suspect]
     Active Substance: TESTOSTERONE ENANTHATE
     Indication: Product used for unknown indication
     Route: 065
  13. DEXILANT [Suspect]
     Active Substance: DEXLANSOPRAZOLE
     Indication: Product used for unknown indication
     Route: 065
  14. DILTIAZEM [Suspect]
     Active Substance: DILTIAZEM
     Indication: Product used for unknown indication
     Route: 048
  15. DILTIAZEM HYDROCHLORIDE [Suspect]
     Active Substance: DILTIAZEM HYDROCHLORIDE
     Indication: Product used for unknown indication
     Route: 065
  16. ESCITALOPRAM [Suspect]
     Active Substance: ESCITALOPRAM OXALATE
     Indication: Product used for unknown indication
     Route: 065
  17. ESCITALOPRAM OXALATE [Suspect]
     Active Substance: ESCITALOPRAM OXALATE
     Indication: Product used for unknown indication
     Route: 065
  18. HYDROCORTISONE [Suspect]
     Active Substance: HYDROCORTISONE
     Indication: Product used for unknown indication
     Route: 061
  19. LEVOTHYROXINE SODIUM [Suspect]
     Active Substance: LEVOTHYROXINE SODIUM
     Indication: Product used for unknown indication
     Route: 065
  20. METOCLOPRAMIDE HYDROCHLORIDE [Suspect]
     Active Substance: METOCLOPRAMIDE HYDROCHLORIDE
     Indication: Product used for unknown indication
     Route: 065
  21. METOCLOPRAMIDE [Suspect]
     Active Substance: METOCLOPRAMIDE
     Indication: Product used for unknown indication
     Route: 065
  22. MORNIFLUMATE [Suspect]
     Active Substance: MORNIFLUMATE
     Indication: Product used for unknown indication
     Route: 065
  23. NASONEX [Suspect]
     Active Substance: MOMETASONE FUROATE
     Indication: Product used for unknown indication
     Route: 045
  24. RAMIPRIL [Suspect]
     Active Substance: RAMIPRIL
     Indication: Product used for unknown indication
     Route: 065
  25. ZOPICLONE [Suspect]
     Active Substance: ZOPICLONE
     Indication: Product used for unknown indication
     Route: 065
  26. RIVOTRIL [Suspect]
     Active Substance: CLONAZEPAM
     Indication: Product used for unknown indication
     Route: 065
  27. ROSUVASTATIN [Suspect]
     Active Substance: ROSUVASTATIN
     Indication: Product used for unknown indication
     Route: 048
  28. SYNTHROID [Suspect]
     Active Substance: LEVOTHYROXINE SODIUM
     Indication: Product used for unknown indication
     Route: 065
  29. TAMSULOSIN HYDROCHLORIDE [Suspect]
     Active Substance: TAMSULOSIN HYDROCHLORIDE
     Indication: Product used for unknown indication
     Route: 065
  30. TESTOSTERONE [Suspect]
     Active Substance: TESTOSTERONE
     Indication: Product used for unknown indication
     Route: 065
  31. TRAZODONE [Suspect]
     Active Substance: TRAZODONE HYDROCHLORIDE
     Indication: Product used for unknown indication
     Route: 065
  32. TRAZODONE HYDROCHLORIDE [Suspect]
     Active Substance: TRAZODONE HYDROCHLORIDE
     Indication: Product used for unknown indication
     Route: 048
  33. ZOPICLONE [Suspect]
     Active Substance: ZOPICLONE
     Indication: Product used for unknown indication
     Route: 065
  34. NITRO-DUR [Suspect]
     Active Substance: NITROGLYCERIN
     Indication: Prinzmetal angina
     Route: 048
  35. NITRO-DUR [Suspect]
     Active Substance: NITROGLYCERIN
     Indication: Product used for unknown indication
     Route: 065
  36. NITRO-DUR [Suspect]
     Active Substance: NITROGLYCERIN
     Indication: Prinzmetal angina
     Route: 065
  37. NITRO-DUR [Suspect]
     Active Substance: NITROGLYCERIN
     Indication: Product used for unknown indication
     Dosage: EXTENDED RELEASE PATCH
     Route: 065
  38. NITRO-DUR [Suspect]
     Active Substance: NITROGLYCERIN
     Indication: Prinzmetal angina
     Dosage: EXTENDED RELEASE PATCH
     Route: 065
  39. NITRO-DUR [Suspect]
     Active Substance: NITROGLYCERIN
     Indication: Product used for unknown indication
     Route: 048
  40. NITRO-DUR [Suspect]
     Active Substance: NITROGLYCERIN
     Indication: Prinzmetal angina
     Route: 048
  41. NITROGLYCERIN [Suspect]
     Active Substance: NITROGLYCERIN
     Indication: Prinzmetal angina
     Route: 048
  42. NITROGLYCERIN [Suspect]
     Active Substance: NITROGLYCERIN
     Indication: Product used for unknown indication
     Route: 048
  43. NITROGLYCERIN [Suspect]
     Active Substance: NITROGLYCERIN
     Indication: Prinzmetal angina
     Route: 048
  44. NITROGLYCERIN [Suspect]
     Active Substance: NITROGLYCERIN
     Indication: Product used for unknown indication
     Route: 048
  45. NITROGLYCERIN [Suspect]
     Active Substance: NITROGLYCERIN
     Indication: Prinzmetal angina
     Route: 048
  46. NITROGLYCERIN [Suspect]
     Active Substance: NITROGLYCERIN
     Indication: Product used for unknown indication
     Route: 048
  47. NITROGLYCERIN [Suspect]
     Active Substance: NITROGLYCERIN
     Indication: Product used for unknown indication
     Route: 065
  48. ASPIRIN [Suspect]
     Active Substance: ASPIRIN
     Indication: Product used for unknown indication
     Route: 065
  49. BISOPROLOL [Suspect]
     Active Substance: BISOPROLOL
     Indication: Product used for unknown indication
     Route: 065
  50. BRILINTA [Suspect]
     Active Substance: TICAGRELOR
     Indication: Product used for unknown indication
     Route: 065
  51. BRILINTA [Suspect]
     Active Substance: TICAGRELOR
     Indication: Product used for unknown indication
     Route: 048
  52. CICLOPIROX OLAMINE [Suspect]
     Active Substance: CICLOPIROX OLAMINE
     Indication: Product used for unknown indication
     Route: 065
  53. DELATESTRYL [Suspect]
     Active Substance: TESTOSTERONE ENANTHATE
     Indication: Product used for unknown indication
     Dosage: SOLUTION INTRAMUSCULAR
     Route: 030
  54. DEXILANT [Suspect]
     Active Substance: DEXLANSOPRAZOLE
     Indication: Product used for unknown indication
     Route: 065
  55. DEXILANT [Suspect]
     Active Substance: DEXLANSOPRAZOLE
     Indication: Product used for unknown indication
     Dosage: CAPSULE, DELAYED RELEASE
     Route: 065
  56. ESCITALOPRAM OXALATE [Suspect]
     Active Substance: ESCITALOPRAM OXALATE
     Indication: Product used for unknown indication
     Route: 030
  57. ESCITALOPRAM OXALATE [Suspect]
     Active Substance: ESCITALOPRAM OXALATE
     Indication: Product used for unknown indication
     Route: 065
  58. ESCITALOPRAM OXALATE [Suspect]
     Active Substance: ESCITALOPRAM OXALATE
     Indication: Product used for unknown indication
     Route: 065
  59. HYDROCORTISONE [Suspect]
     Active Substance: HYDROCORTISONE
     Indication: Product used for unknown indication
     Route: 065
  60. HYDROCORTISONE [Suspect]
     Active Substance: HYDROCORTISONE
     Indication: Product used for unknown indication
     Route: 061
  61. HYDROCORTISONE [Suspect]
     Active Substance: HYDROCORTISONE
     Indication: Product used for unknown indication
     Route: 061
  62. METOCLOPRAMIDE [Suspect]
     Active Substance: METOCLOPRAMIDE
     Indication: Migraine
     Route: 065
  63. METOCLOPRAMIDE [Suspect]
     Active Substance: METOCLOPRAMIDE
     Indication: Product used for unknown indication
     Route: 048
  64. METOCLOPRAMIDE [Suspect]
     Active Substance: METOCLOPRAMIDE
     Indication: Migraine
     Route: 048
  65. NASONEX [Suspect]
     Active Substance: MOMETASONE FUROATE
     Indication: Product used for unknown indication
     Route: 045
  66. NASONEX [Suspect]
     Active Substance: MOMETASONE FUROATE
     Indication: Product used for unknown indication
     Dosage: SPRAY, METERED DOSE
     Route: 045
  67. NASONEX [Suspect]
     Active Substance: MOMETASONE FUROATE
     Indication: Product used for unknown indication
     Route: 050
  68. RAMIPRIL [Suspect]
     Active Substance: RAMIPRIL
     Indication: Product used for unknown indication
     Route: 065
  69. RIVOTRIL [Suspect]
     Active Substance: CLONAZEPAM
     Indication: Product used for unknown indication
     Route: 048
  70. RIVOTRIL [Suspect]
     Active Substance: CLONAZEPAM
     Indication: Product used for unknown indication
     Route: 065
  71. ROSUVASTATIN [Suspect]
     Active Substance: ROSUVASTATIN
     Indication: Prinzmetal angina
     Route: 048
  72. ROSUVASTATIN [Suspect]
     Active Substance: ROSUVASTATIN
     Indication: Migraine
     Route: 065
  73. ROSUVASTATIN [Suspect]
     Active Substance: ROSUVASTATIN
     Indication: Product used for unknown indication
     Route: 065
  74. ROSUVASTATIN [Suspect]
     Active Substance: ROSUVASTATIN
     Indication: Product used for unknown indication
     Route: 065
  75. ROSUVASTATIN [Suspect]
     Active Substance: ROSUVASTATIN
     Indication: Prinzmetal angina
     Route: 065
  76. ROSUVASTATIN [Suspect]
     Active Substance: ROSUVASTATIN
     Indication: Migraine
     Route: 065
  77. ROSUVASTATIN [Suspect]
     Active Substance: ROSUVASTATIN
     Indication: Product used for unknown indication
     Route: 065
  78. ROSUVASTATIN [Suspect]
     Active Substance: ROSUVASTATIN
     Indication: Migraine
     Route: 065
  79. ROSUVASTATIN [Suspect]
     Active Substance: ROSUVASTATIN
     Indication: Product used for unknown indication
     Route: 065
  80. ROSUVASTATIN [Suspect]
     Active Substance: ROSUVASTATIN
     Indication: Prinzmetal angina
     Route: 065
  81. ROSUVASTATIN [Suspect]
     Active Substance: ROSUVASTATIN
     Indication: Migraine
     Route: 065
  82. ROSUVASTATIN [Suspect]
     Active Substance: ROSUVASTATIN
     Indication: Product used for unknown indication
     Route: 065
  83. ROSUVASTATIN [Suspect]
     Active Substance: ROSUVASTATIN
     Indication: Prinzmetal angina
     Route: 065
  84. ROSUVASTATIN [Suspect]
     Active Substance: ROSUVASTATIN
     Indication: Migraine
     Route: 065
  85. ROSUVASTATIN [Suspect]
     Active Substance: ROSUVASTATIN
     Indication: Product used for unknown indication
     Route: 065
  86. ROSUVASTATIN [Suspect]
     Active Substance: ROSUVASTATIN
     Indication: Prinzmetal angina
     Route: 065
  87. ROSUVASTATIN [Suspect]
     Active Substance: ROSUVASTATIN
     Indication: Product used for unknown indication
     Route: 065
  88. ROSUVASTATIN [Suspect]
     Active Substance: ROSUVASTATIN
     Indication: Prinzmetal angina
     Route: 065
  89. ROSUVASTATIN [Suspect]
     Active Substance: ROSUVASTATIN
     Indication: Migraine
     Route: 065
  90. ROSUVASTATIN [Suspect]
     Active Substance: ROSUVASTATIN
     Indication: Product used for unknown indication
     Route: 065
  91. ROSUVASTATIN [Suspect]
     Active Substance: ROSUVASTATIN
     Indication: Prinzmetal angina
     Route: 065
  92. ROSUVASTATIN [Suspect]
     Active Substance: ROSUVASTATIN
     Indication: Migraine
     Route: 065
  93. ROSUVASTATIN [Suspect]
     Active Substance: ROSUVASTATIN
     Indication: Product used for unknown indication
     Route: 065
  94. ROSUVASTATIN [Suspect]
     Active Substance: ROSUVASTATIN
     Indication: Prinzmetal angina
     Route: 065
  95. ROSUVASTATIN [Suspect]
     Active Substance: ROSUVASTATIN
     Indication: Migraine
     Route: 065
  96. ROSUVASTATIN [Suspect]
     Active Substance: ROSUVASTATIN
     Indication: Prinzmetal angina
     Route: 065
  97. ROSUVASTATIN [Suspect]
     Active Substance: ROSUVASTATIN
     Indication: Migraine
     Route: 065
  98. ROSUVASTATIN [Suspect]
     Active Substance: ROSUVASTATIN
     Indication: Product used for unknown indication
     Route: 065
  99. ROSUVASTATIN [Suspect]
     Active Substance: ROSUVASTATIN
     Indication: Prinzmetal angina
     Route: 065
  100. ROSUVASTATIN [Suspect]
     Active Substance: ROSUVASTATIN
     Indication: Migraine
     Route: 065
  101. ROSUVASTATIN [Suspect]
     Active Substance: ROSUVASTATIN
     Indication: Product used for unknown indication
     Route: 065
  102. ROSUVASTATIN [Suspect]
     Active Substance: ROSUVASTATIN
     Indication: Prinzmetal angina
     Route: 065
  103. ROSUVASTATIN [Suspect]
     Active Substance: ROSUVASTATIN
     Indication: Migraine
     Route: 065
  104. TAMSULOSIN HYDROCHLORIDE [Suspect]
     Active Substance: TAMSULOSIN HYDROCHLORIDE
     Indication: Product used for unknown indication
     Route: 065
  105. TRAZODONE [Suspect]
     Active Substance: TRAZODONE HYDROCHLORIDE
     Indication: Product used for unknown indication
     Route: 065
  106. ROSUVASTATIN [Suspect]
     Active Substance: ROSUVASTATIN
     Indication: Product used for unknown indication
     Route: 061
  107. ROSUVASTATIN [Suspect]
     Active Substance: ROSUVASTATIN
     Indication: Prinzmetal angina
     Route: 061
  108. ROSUVASTATIN [Suspect]
     Active Substance: ROSUVASTATIN
     Indication: Migraine
     Route: 061
  109. NITRO-DUR [Suspect]
     Active Substance: NITROGLYCERIN
     Indication: Product used for unknown indication
     Route: 048
  110. NITRO-DUR [Suspect]
     Active Substance: NITROGLYCERIN
     Indication: Prinzmetal angina
     Route: 048
  111. NITROGLYCERIN [Suspect]
     Active Substance: NITROGLYCERIN
     Indication: Product used for unknown indication
     Route: 048
  112. NITROGLYCERIN [Suspect]
     Active Substance: NITROGLYCERIN
     Indication: Prinzmetal angina
     Route: 048
  113. NITROGLYCERIN [Suspect]
     Active Substance: NITROGLYCERIN
     Indication: Product used for unknown indication
     Route: 048
  114. NITROGLYCERIN [Suspect]
     Active Substance: NITROGLYCERIN
     Indication: Prinzmetal angina
     Route: 048
  115. NITROGLYCERIN [Suspect]
     Active Substance: NITROGLYCERIN
     Indication: Product used for unknown indication
     Route: 048
  116. NITROGLYCERIN [Suspect]
     Active Substance: NITROGLYCERIN
     Indication: Prinzmetal angina
     Route: 048
  117. NITROGLYCERIN [Suspect]
     Active Substance: NITROGLYCERIN
     Indication: Product used for unknown indication
     Route: 048
  118. NITROGLYCERIN [Suspect]
     Active Substance: NITROGLYCERIN
     Indication: Prinzmetal angina
     Route: 048
  119. NITROGLYCERIN [Suspect]
     Active Substance: NITROGLYCERIN
     Indication: Product used for unknown indication
     Route: 048
  120. NITROGLYCERIN [Suspect]
     Active Substance: NITROGLYCERIN
     Indication: Prinzmetal angina
     Route: 048
  121. NASONEX [Suspect]
     Active Substance: MOMETASONE FUROATE
     Indication: Product used for unknown indication
     Route: 045
  122. NASONEX [Suspect]
     Active Substance: MOMETASONE FUROATE
     Indication: Product used for unknown indication
     Route: 045
  123. NASONEX [Suspect]
     Active Substance: MOMETASONE FUROATE
     Indication: Product used for unknown indication
     Route: 045
  124. NASONEX [Suspect]
     Active Substance: MOMETASONE FUROATE
     Indication: Product used for unknown indication
     Route: 045
  125. NASONEX [Suspect]
     Active Substance: MOMETASONE FUROATE
     Indication: Product used for unknown indication
     Route: 050
  126. ROSUVASTATIN [Suspect]
     Active Substance: ROSUVASTATIN
     Indication: Migraine
     Route: 048
  127. ROSUVASTATIN [Suspect]
     Active Substance: ROSUVASTATIN
     Indication: Prinzmetal angina
     Route: 065
  128. ROSUVASTATIN [Suspect]
     Active Substance: ROSUVASTATIN
     Indication: Product used for unknown indication
     Route: 065
  129. ROSUVASTATIN [Suspect]
     Active Substance: ROSUVASTATIN
     Indication: Prinzmetal angina
     Route: 065
  130. ROSUVASTATIN [Suspect]
     Active Substance: ROSUVASTATIN
     Indication: Migraine
     Route: 065
  131. ROSUVASTATIN [Suspect]
     Active Substance: ROSUVASTATIN
     Indication: Product used for unknown indication
     Route: 065
  132. ROSUVASTATIN [Suspect]
     Active Substance: ROSUVASTATIN
     Indication: Prinzmetal angina
     Route: 065
  133. ROSUVASTATIN [Suspect]
     Active Substance: ROSUVASTATIN
     Indication: Migraine
     Route: 065
  134. ROSUVASTATIN [Suspect]
     Active Substance: ROSUVASTATIN
     Indication: Product used for unknown indication
     Route: 065
  135. ROSUVASTATIN [Suspect]
     Active Substance: ROSUVASTATIN
     Indication: Prinzmetal angina
     Route: 065
  136. ROSUVASTATIN [Suspect]
     Active Substance: ROSUVASTATIN
     Indication: Migraine
     Route: 065
  137. ROSUVASTATIN [Suspect]
     Active Substance: ROSUVASTATIN
     Indication: Product used for unknown indication
     Route: 048
  138. ROSUVASTATIN [Suspect]
     Active Substance: ROSUVASTATIN
     Indication: Prinzmetal angina
     Route: 048
  139. ROSUVASTATIN [Suspect]
     Active Substance: ROSUVASTATIN
     Indication: Migraine
     Route: 048
  140. ROSUVASTATIN [Suspect]
     Active Substance: ROSUVASTATIN
     Indication: Product used for unknown indication
     Route: 048
  141. ROSUVASTATIN [Suspect]
     Active Substance: ROSUVASTATIN
     Indication: Prinzmetal angina
     Route: 048
  142. ROSUVASTATIN [Suspect]
     Active Substance: ROSUVASTATIN
     Indication: Migraine
     Route: 048

REACTIONS (3)
  - Device dislocation [Recovered/Resolved]
  - Device malfunction [Recovered/Resolved]
  - Drug ineffective [Recovered/Resolved]
